FAERS Safety Report 21964310 (Version 3)
Quarter: 2023Q2

REPORT INFORMATION
  Report Type: Spontaneous
  Country: US (occurrence: US)
  Receive Date: 20230207
  Receipt Date: 20230412
  Transmission Date: 20230721
  Serious: Yes (Life-Threatening, Hospitalization, Other)
  Sender: FDA-Public Use
  Company Number: US-BoehringerIngelheim-2023-BI-217287

PATIENT
  Age: 64 Year
  Sex: Male
  Weight: 117.03 kg

DRUGS (1)
  1. JARDIANCE [Suspect]
     Active Substance: EMPAGLIFLOZIN
     Indication: Diabetes mellitus
     Dates: start: 20210311, end: 20230314

REACTIONS (5)
  - Groin infection [Not Recovered/Not Resolved]
  - Septic shock [Recovered/Resolved]
  - Multiple organ dysfunction syndrome [Recovered/Resolved]
  - Cellulitis [Unknown]
  - Sepsis [Recovered/Resolved]

NARRATIVE: CASE EVENT DATE: 20230202
